FAERS Safety Report 6844559-3 (Version None)
Quarter: 2010Q3

REPORT INFORMATION
  Report Type: 
  Country: None (occurrence: None)
  Receive Date: 20100715
  Receipt Date: 20100710
  Transmission Date: 20110219
  Serious: Yes (Other)
  Sender: FDA-Public Use
  Company Number: US-JNJFOC-20100603313

PATIENT
  Age: 63 Year
  Sex: Male

DRUGS (5)
  1. LEVOFLOXACIN [Suspect]
     Indication: PROPHYLAXIS
     Route: 065
  2. LEVOFLOXACIN [Suspect]
     Route: 065
  3. RADIATION THERAPY NOS [Suspect]
     Indication: PROSTATE CANCER
     Dosage: 1,080 CGY, L,440 CGY AND 2,160 CGY
     Route: 065
  4. GOSERELIN [Concomitant]
     Indication: PROSTATE CANCER
     Route: 058
  5. ANTIFUNGAL [Concomitant]
     Route: 065

REACTIONS (3)
  - DIARRHOEA [None]
  - FREQUENT BOWEL MOVEMENTS [None]
  - PHOTOSENSITIVITY REACTION [None]
